FAERS Safety Report 4662817-8 (Version None)
Quarter: 2005Q2

REPORT INFORMATION
  Report Type: 
  Country: None (occurrence: None)
  Receive Date: 20050512
  Receipt Date: 20050422
  Transmission Date: 20051028
  Serious: Yes (Death)
  Sender: FDA-Public Use
  Company Number: USA050496477

PATIENT
  Age: 45 Year
  Sex: Female

DRUGS (4)
  1. ZYPREXA [Suspect]
     Indication: BIPOLAR DISORDER
     Dosage: 10 MG DAY
     Route: 048
  2. TRAZODONE [Concomitant]
  3. DARVOCET-N 100 [Concomitant]
  4. SONATA [Concomitant]

REACTIONS (1)
  - COMPLETED SUICIDE [None]
